FAERS Safety Report 23743476 (Version 1)
Quarter: 2024Q2

REPORT INFORMATION
  Report Type: Spontaneous
  Country: JP (occurrence: JP)
  Receive Date: 20240415
  Receipt Date: 20240415
  Transmission Date: 20240716
  Serious: Yes (Other)
  Sender: FDA-Public Use
  Company Number: JP-ELI_LILLY_AND_COMPANY-JP202404003369

PATIENT
  Age: 86 Year

DRUGS (2)
  1. CYRAMZA [Suspect]
     Active Substance: RAMUCIRUMAB
     Indication: Metastatic gastric cancer
     Dosage: UNK
     Route: 041
     Dates: start: 202312
  2. PACLITAXEL [Suspect]
     Active Substance: PACLITAXEL
     Indication: Metastatic gastric cancer
     Route: 041

REACTIONS (2)
  - Tremor [Recovered/Resolved]
  - Neutrophil count decreased [Unknown]
